FAERS Safety Report 10802018 (Version 1)
Quarter: 2015Q1

REPORT INFORMATION
  Report Type: Spontaneous
  Country: US (occurrence: US)
  Receive Date: 20150217
  Receipt Date: 20150217
  Transmission Date: 20150721
  Serious: Yes (Death)
  Sender: FDA-Public Use
  Company Number: US-BANPHARM-20153441

PATIENT
  Age: 13 Month
  Sex: Female

DRUGS (1)
  1. LIDOCAINE HYDROCHLORIDE UNKNOWN PRODUCT [Suspect]
     Active Substance: LIDOCAINE HYDROCHLORIDE
     Route: 048

REACTIONS (16)
  - Toxicity to various agents [None]
  - Apnoea [None]
  - Corneal reflex decreased [None]
  - Abdominal distension [None]
  - Tachycardia [None]
  - Medication error [Fatal]
  - Seizure [None]
  - Unresponsive to stimuli [None]
  - Hypopnoea [None]
  - Accidental death [None]
  - Electrocardiogram QRS complex shortened [None]
  - Cyanosis [None]
  - Accidental exposure to product by child [None]
  - Abnormal faeces [None]
  - Agonal rhythm [None]
  - Pulse absent [None]
